FAERS Safety Report 20766009 (Version 2)
Quarter: 2022Q2

REPORT INFORMATION
  Report Type: Spontaneous
  Country: US (occurrence: US)
  Receive Date: 20220428
  Receipt Date: 20220507
  Transmission Date: 20220721
  Serious: No
  Sender: FDA-Public Use
  Company Number: US-SA-SAC20220426001552

PATIENT
  Sex: Female

DRUGS (2)
  1. XYZAL ALLERGY 24HR [Suspect]
     Active Substance: LEVOCETIRIZINE DIHYDROCHLORIDE
     Indication: Seasonal allergy
     Route: 065
  2. FEXOFENADINE HYDROCHLORIDE (ALLEGRA) [Concomitant]
     Dosage: UNK
     Route: 065

REACTIONS (1)
  - Palpitations [Not Recovered/Not Resolved]
